FAERS Safety Report 20795542 (Version 1)
Quarter: 2022Q2

REPORT INFORMATION
  Report Type: Spontaneous
  Country: PL (occurrence: PL)
  Receive Date: 20220506
  Receipt Date: 20220506
  Transmission Date: 20220721
  Serious: Yes (Hospitalization, Other)
  Sender: FDA-Public Use
  Company Number: PL-009507513-2205POL001192

PATIENT
  Age: 75 Year
  Sex: Male

DRUGS (1)
  1. BCG LIVE [Suspect]
     Active Substance: BACILLUS CALMETTE-GUERIN SUBSTRAIN TICE LIVE ANTIGEN
     Indication: Bladder cancer
     Dosage: UNK
     Dates: start: 201809, end: 202109

REACTIONS (2)
  - Respiratory failure [Recovered/Resolved]
  - Disseminated Bacillus Calmette-Guerin infection [Recovering/Resolving]

NARRATIVE: CASE EVENT DATE: 20210101
